FAERS Safety Report 15675766 (Version 2)
Quarter: 2019Q2

REPORT INFORMATION
  Report Type: Report from Study
  Country: ES (occurrence: ES)
  Receive Date: 20181130
  Receipt Date: 20190523
  Transmission Date: 20190711
  Serious: Yes (Hospitalization)
  Sender: FDA-Public Use
  Company Number: ES-SA-2018SA304322

PATIENT
  Age: 77 Year
  Sex: Female

DRUGS (17)
  1. OXALIPLATIN. [Suspect]
     Active Substance: OXALIPLATIN
     Indication: PANCREATIC CARCINOMA METASTATIC
     Dosage: 132 MG, QCY
     Route: 042
     Dates: start: 20180801, end: 20180801
  2. FLUOROURACIL. [Suspect]
     Active Substance: FLUOROURACIL
     Dosage: 3720 MG, QCY
     Route: 042
     Dates: start: 20180801, end: 20180803
  3. EUTIROX [Concomitant]
     Active Substance: LEVOTHYROXINE SODIUM
     Dosage: UNK
  4. FENTANILO [FENTANYL] [Concomitant]
     Dosage: UNK
     Dates: start: 20180725
  5. HYDROCHLOROTHIAZIDE. [Concomitant]
     Active Substance: HYDROCHLOROTHIAZIDE
  6. SIMVASTATINA [Concomitant]
     Active Substance: SIMVASTATIN
  7. FLUOROURACIL. [Suspect]
     Active Substance: FLUOROURACIL
     Indication: PANCREATIC CARCINOMA METASTATIC
     Dosage: 620 MG, QCY
     Route: 040
     Dates: start: 20180801, end: 20180803
  8. FOLINIC ACID [Suspect]
     Active Substance: LEUCOVORIN
     Indication: PANCREATIC CARCINOMA METASTATIC
     Dosage: 620 MG, QCY
     Route: 042
     Dates: start: 20180801, end: 20180801
  9. ADIRO [Concomitant]
     Active Substance: ASPIRIN
     Dosage: UNK
  10. PARACETAMOL [Concomitant]
     Active Substance: ACETAMINOPHEN
     Dosage: UNK
     Dates: start: 20180801
  11. HIBOR [Concomitant]
     Dosage: UNK
     Dates: start: 20180711
  12. OMEPRAZOL A [Concomitant]
     Dosage: UNK
     Dates: start: 20180307
  13. RANITIDINA ALTER [Concomitant]
     Dosage: UNK
  14. METFORMIN [Concomitant]
     Active Substance: METFORMIN HYDROCHLORIDE
     Dosage: UNK
  15. ZYLORIC [Concomitant]
     Active Substance: ALLOPURINOL
     Dosage: UNK
  16. DEXAMETHASONE. [Concomitant]
     Active Substance: DEXAMETHASONE
     Dosage: UNK
     Dates: start: 20180801
  17. ONDANSETRON [Concomitant]
     Active Substance: ONDANSETRON
     Dosage: UNK
     Dates: start: 20180801

REACTIONS (3)
  - General physical health deterioration [Unknown]
  - Vomiting [Unknown]
  - Metastases to meninges [Unknown]

NARRATIVE: CASE EVENT DATE: 20180807
